FAERS Safety Report 13181012 (Version 1)
Quarter: 2017Q1

REPORT INFORMATION
  Report Type: Spontaneous
  Country: US (occurrence: US)
  Receive Date: 20170202
  Receipt Date: 20170202
  Transmission Date: 20170428
  Serious: No
  Sender: FDA-Public Use
  Company Number: US-SMITH AND NEPHEW, INC-2016SMT00375

PATIENT
  Age: 69 Year
  Sex: Female
  Weight: 81.63 kg

DRUGS (10)
  1. TOUJEO [Concomitant]
     Active Substance: INSULIN GLARGINE
     Dosage: 80 U, 1X/DAY
  2. LOVASTATIN. [Concomitant]
     Active Substance: LOVASTATIN
     Dosage: 20 MG, 1X/DAY
  3. GABAPENTIN. [Concomitant]
     Active Substance: GABAPENTIN
     Dosage: 300 MG, 2X/DAY
  4. FUROSEMIDE. [Concomitant]
     Active Substance: FUROSEMIDE
     Dosage: 20 MG, 1X/DAY
  5. SPIRONOLACTONE. [Concomitant]
     Active Substance: SPIRONOLACTONE
     Dosage: 50 MG, 1X/DAY
  6. METFORMIN [Concomitant]
     Active Substance: METFORMIN HYDROCHLORIDE
     Dosage: 1000 MG, 2X/DAY
  7. LEVOTHYROXINE. [Concomitant]
     Active Substance: LEVOTHYROXINE
     Dosage: 50 ?G, 1X/DAY
  8. REGRANEX [Suspect]
     Active Substance: BECAPLERMIN
     Indication: SKIN ULCER
     Dosage: UNK, 1X/DAY FOR 12 HOURS ON AND 12 HOURS OFF
     Route: 061
     Dates: start: 20160322
  9. HUMALOG [Concomitant]
     Active Substance: INSULIN LISPRO
     Dosage: UNK, SLIDING SCALE WITH MEALS
  10. PAROXETINE. [Concomitant]
     Active Substance: PAROXETINE
     Dosage: 20 MG, 1X/DAY

REACTIONS (2)
  - Wound complication [Unknown]
  - Drug effect incomplete [Unknown]

NARRATIVE: CASE EVENT DATE: 20160419
